FAERS Safety Report 5066971-8 (Version None)
Quarter: 2006Q3

REPORT INFORMATION
  Report Type: 
  Country: None (occurrence: None)
  Receive Date: 20060728
  Receipt Date: 20060720
  Transmission Date: 20061208
  Serious: Yes (Hospitalization)
  Sender: FDA-Public Use
  Company Number: TPA2006A01163

PATIENT
  Age: 80 Year
  Sex: Female
  Weight: 90.7194 kg

DRUGS (8)
  1. ACTOS [Suspect]
     Indication: DIABETES MELLITUS NON-INSULIN-DEPENDENT
     Dosage: 45 MG, 1 IN 1 D,PER ORAL
     Route: 048
     Dates: start: 20040101, end: 20060715
  2. FOSAMAX [Suspect]
     Indication: DRUG USE FOR UNKNOWN INDICATION
     Dates: end: 20060501
  3. METFROMIN (METFORMIN) [Concomitant]
  4. GLIPIZIDE [Concomitant]
  5. AMITRIPTYLINE (AMITRIPTYLINE) [Concomitant]
  6. IMIPRAMINE [Concomitant]
  7. LIPITOR [Concomitant]
  8. PREMARIN (MEDROGESTONE, ESTROGENS CONJUGATED) [Concomitant]

REACTIONS (3)
  - GASTRIC HAEMORRHAGE [None]
  - OEDEMA PERIPHERAL [None]
  - URINARY TRACT INFECTION [None]
